FAERS Safety Report 9929289 (Version 2)
Quarter: 2015Q1

REPORT INFORMATION
  Report Type: Spontaneous
  Country: US (occurrence: US)
  Receive Date: 20140227
  Receipt Date: 20150206
  Transmission Date: 20150721
  Serious: Yes (Other)
  Sender: FDA-Public Use
  Company Number: US-GLAXOSMITHKLINE-A1061547A

PATIENT
  Sex: Female

DRUGS (2)
  1. BENLYSTA [Suspect]
     Active Substance: BELIMUMAB
     Indication: SJOGREN^S SYNDROME
     Dosage: UNKNOWN DOSING
     Route: 042
  2. NO CONCURRENT MEDICATION [Concomitant]
     Active Substance: UNSPECIFIED INGREDIENT

REACTIONS (8)
  - Dental care [Unknown]
  - Salivary hypersecretion [Unknown]
  - Malaise [Unknown]
  - White blood cell count decreased [Unknown]
  - White blood cell count abnormal [Unknown]
  - Suicidal ideation [Unknown]
  - Hepatic enzyme increased [Unknown]
  - Oral discomfort [Unknown]

NARRATIVE: CASE EVENT DATE: 201312
